FAERS Safety Report 25013011 (Version 3)
Quarter: 2025Q3

REPORT INFORMATION
  Report Type: Report from Study
  Country: US (occurrence: US)
  Receive Date: 20250226
  Receipt Date: 20250803
  Transmission Date: 20251021
  Serious: Yes (Other)
  Sender: ALEXION PHARMACEUTICALS
  Company Number: US-AstraZeneca-CH-00809790A

PATIENT
  Sex: Female

DRUGS (1)
  1. BENRALIZUMAB [Suspect]
     Active Substance: BENRALIZUMAB
     Route: 065

REACTIONS (8)
  - Diabetes mellitus [Unknown]
  - Fracture [Unknown]
  - Cartilage injury [Unknown]
  - Road traffic accident [Unknown]
  - Arthritis [Unknown]
  - Hypersomnia [Unknown]
  - Blood glucose abnormal [Unknown]
  - Product dose omission issue [Unknown]
